FAERS Safety Report 5713206-6 (Version None)
Quarter: 2008Q2

REPORT INFORMATION
  Report Type: 
  Country: None (occurrence: None)
  Receive Date: 20080422
  Receipt Date: 19960116
  Transmission Date: 20081010
  Serious: Yes (Death, Hospitalization)
  Sender: FDA-Public Use
  Company Number: US-ROCHE-56803

PATIENT
  Sex: Male
  Weight: 73 kg

DRUGS (3)
  1. SAQUINAVIR [Suspect]
     Route: 048
     Dates: start: 19951221, end: 19960115
  2. LAMIVUDINE [Concomitant]
     Route: 048
     Dates: start: 19951117, end: 19960115
  3. CYTOVENE [Concomitant]
     Route: 048
     Dates: start: 19951117, end: 19960115

REACTIONS (2)
  - DEATH [None]
  - PNEUMONIA [None]
